FAERS Safety Report 5253486-7 (Version None)
Quarter: 2007Q1

REPORT INFORMATION
  Report Type: 
  Country: None (occurrence: None)
  Receive Date: 20070301
  Receipt Date: 20070222
  Transmission Date: 20070707
  Serious: Yes (Congenital Anomaly)
  Sender: FDA-Public Use
  Company Number: US-BOEHRINGER INGELHEIM PHARMACEUTICALS, INC.-2007-BP-01034BP

PATIENT
  Sex: Female
  Weight: 3 kg

DRUGS (6)
  1. VIRAMUNE [Suspect]
     Indication: HIV INFECTION
     Route: 015
     Dates: start: 20060730, end: 20061025
  2. COMBIVIR [Suspect]
     Indication: HIV INFECTION
     Route: 015
     Dates: start: 20060730, end: 20061031
  3. RETROVIR [Suspect]
     Indication: HIV INFECTION
     Route: 015
     Dates: start: 20061025, end: 20061025
  4. EPZICOM [Concomitant]
     Indication: HIV INFECTION
     Route: 048
     Dates: start: 20061101
  5. ZERIT [Concomitant]
     Indication: HIV INFECTION
     Route: 048
     Dates: start: 20061101
  6. VIREAD [Concomitant]
     Indication: HIV INFECTION
     Route: 048
     Dates: start: 20061101

REACTIONS (1)
  - MICROCEPHALY [None]
